FAERS Safety Report 5412761-3 (Version None)
Quarter: 2007Q3

REPORT INFORMATION
  Report Type: 
  Country: None (occurrence: None)
  Receive Date: 20070813
  Receipt Date: 20070806
  Transmission Date: 20080115
  Serious: Yes (Hospitalization)
  Sender: FDA-Public Use
  Company Number: JP-SANOFI-SYNTHELABO-F01200700851

PATIENT
  Sex: Female

DRUGS (9)
  1. MAGNESIUM OXIDE [Concomitant]
     Indication: CONSTIPATION
     Dosage: 1 G
     Route: 048
     Dates: start: 20070501
  2. HYPADIL [Concomitant]
     Indication: GLAUCOMA
     Route: 047
     Dates: start: 20030101
  3. XALATAN [Concomitant]
     Indication: GLAUCOMA
     Dosage: 0.5 MG/ML
     Route: 047
     Dates: start: 20040101
  4. LANSOPRAZOLE [Concomitant]
     Dosage: 15 MG
     Route: 048
     Dates: start: 20070625
  5. OMEPRAZOLE [Concomitant]
     Dosage: 20 MG
     Route: 048
     Dates: start: 20070501, end: 20070624
  6. PROMAC [Concomitant]
     Dosage: 75 MG
     Route: 048
     Dates: start: 20070501
  7. FERROMIA [Concomitant]
     Indication: ANAEMIA
     Route: 048
     Dates: start: 20070501, end: 20070625
  8. TS-1 [Suspect]
     Route: 048
     Dates: start: 20070621, end: 20070626
  9. ELPLAT [Suspect]
     Indication: COLON CANCER
     Route: 042
     Dates: start: 20070621, end: 20070621

REACTIONS (4)
  - ANAEMIA [None]
  - ANOREXIA [None]
  - DELIRIUM [None]
  - HYPONATRAEMIA [None]
